FAERS Safety Report 22172126 (Version 1)
Quarter: 2023Q2

REPORT INFORMATION
  Report Type: Spontaneous
  Country: GB (occurrence: GB)
  Receive Date: 20230404
  Receipt Date: 20230404
  Transmission Date: 20230721
  Serious: Yes (Other)
  Sender: FDA-Public Use
  Company Number: GB-MHRA-MED-202303281343151810-LFDTJ

PATIENT
  Age: 14 Year
  Sex: Male
  Weight: 52 kg

DRUGS (6)
  1. OMEPRAZOLE [Suspect]
     Active Substance: OMEPRAZOLE
     Indication: Product used for unknown indication
     Dosage: 40 MILLIGRAM
     Route: 065
     Dates: start: 20221004
  2. PREDNISOLONE [Suspect]
     Active Substance: PREDNISOLONE
     Indication: Product used for unknown indication
     Dosage: UP TO 60 MILLIGRAM
     Route: 065
     Dates: start: 20221004
  3. BENZOYL PEROXIDE [Concomitant]
     Active Substance: BENZOYL PEROXIDE
     Indication: Acne
     Dosage: UNK (01-NOV-2022)
     Route: 065
  4. GABAPENTIN [Concomitant]
     Active Substance: GABAPENTIN
     Indication: Dystonia
     Dosage: UNK (09-DEC-2022)
     Route: 065
  5. METHYLPREDNISOLONE [Concomitant]
     Active Substance: METHYLPREDNISOLONE
     Indication: Demyelination
     Dosage: UNK
     Route: 065
     Dates: start: 20221004, end: 20221009
  6. NIZORAL [Concomitant]
     Active Substance: KETOCONAZOLE
     Indication: Acne
     Dosage: UNK (01-NOV-2022)
     Route: 065

REACTIONS (1)
  - Dystonia [Recovered/Resolved]

NARRATIVE: CASE EVENT DATE: 20221019
